FAERS Safety Report 23829142 (Version 1)
Quarter: 2024Q2

REPORT INFORMATION
  Report Type: Spontaneous
  Country: US (occurrence: US)
  Receive Date: 20240508
  Receipt Date: 20240508
  Transmission Date: 20240715
  Serious: No
  Sender: FDA-Public Use
  Company Number: US-UCBSA-2024007688

PATIENT
  Age: 57 Year
  Sex: Female

DRUGS (1)
  1. CIMZIA [Suspect]
     Active Substance: CERTOLIZUMAB PEGOL
     Indication: Product used for unknown indication
     Dosage: 400 MILLIGRAM (FREQUENCY OTHER)
     Route: 058
     Dates: start: 202102

REACTIONS (4)
  - Joint swelling [Unknown]
  - Headache [Unknown]
  - Abdominal discomfort [Unknown]
  - Trichorrhexis [Unknown]

NARRATIVE: CASE EVENT DATE: 20211012
